FAERS Safety Report 10967810 (Version 1)
Quarter: 2015Q1

REPORT INFORMATION
  Report Type: Report from Study
  Country: CA (occurrence: CA)
  Receive Date: 20150330
  Receipt Date: 20150330
  Transmission Date: 20150721
  Serious: Yes (Disabling, Other)
  Sender: FDA-Public Use
  Company Number: CA-GILEAD-2015-0145136

PATIENT
  Age: 35 Year
  Sex: Female

DRUGS (1)
  1. TENOFOVIR DISOPROXIL FUMARATE [Suspect]
     Active Substance: TENOFOVIR DISOPROXIL FUMARATE
     Indication: HEPATITIS
     Dosage: UNK
     Route: 048
     Dates: start: 201307

REACTIONS (1)
  - Deafness [Not Recovered/Not Resolved]
